FAERS Safety Report 4726736-0 (Version None)
Quarter: 2005Q3

REPORT INFORMATION
  Report Type: 
  Country: None (occurrence: None)
  Receive Date: 20050725
  Receipt Date: 20050418
  Transmission Date: 20060218
  Serious: No
  Sender: FDA-Public Use
  Company Number: USA050495959

PATIENT
  Sex: Female

DRUGS (3)
  1. STRATTERA [Suspect]
     Indication: ATTENTION DEFICIT/HYPERACTIVITY DISORDER
     Dosage: 25 MG DAY
     Dates: start: 20050413, end: 20050417
  2. CLONAPIN(CLONAZEPAM) [Concomitant]
  3. SEROQUEL [Concomitant]

REACTIONS (3)
  - ABNORMAL BEHAVIOUR [None]
  - IRRITABILITY [None]
  - VISION BLURRED [None]
